FAERS Safety Report 10070722 (Version 1)
Quarter: 2014Q2

REPORT INFORMATION
  Report Type: Spontaneous
  Country: US (occurrence: None)
  Receive Date: 20140408
  Receipt Date: 20140408
  Transmission Date: 20141212
  Serious: Yes (Other)
  Sender: FDA-Public Use
  Company Number: 201403127

PATIENT
  Age: 53 Year
  Sex: Male
  Weight: 95.71 kg

DRUGS (1)
  1. TESTIM (TESTOSTERONE) [Suspect]
     Indication: BLOOD TESTOSTERONE DECREASED
     Route: 062
     Dates: start: 201104, end: 201111

REACTIONS (1)
  - Prostate cancer [None]
